FAERS Safety Report 7075587-3 (Version None)
Quarter: 2010Q4

REPORT INFORMATION
  Report Type: 
  Country: None (occurrence: None)
  Receive Date: 20101030
  Receipt Date: 20100921
  Transmission Date: 20110411
  Serious: No
  Sender: FDA-Public Use
  Company Number: US-WYE-H17731910

PATIENT
  Sex: Male
  Weight: 77.18 kg

DRUGS (1)
  1. PRISTIQ [Suspect]
     Indication: DEPRESSION
     Dates: start: 20100901, end: 20100921

REACTIONS (1)
  - BACK PAIN [None]
